FAERS Safety Report 4663805-8 (Version None)
Quarter: 2005Q2

REPORT INFORMATION
  Report Type: 
  Country: None (occurrence: None)
  Receive Date: 20050511
  Receipt Date: 20050329
  Transmission Date: 20051028
  Serious: Yes (Other)
  Sender: FDA-Public Use
  Company Number: 400262

PATIENT
  Age: 40 Year
  Sex: Female

DRUGS (2)
  1. PEGASYS [Suspect]
     Indication: HEPATITIS C VIRUS
     Dosage: 180 MCG/ML, 1 PER WEEK, SUBCUTANEOUS
     Route: 058
     Dates: start: 20041103, end: 20050328
  2. COPEGUS [Suspect]
     Indication: HEPATITIS C VIRUS
     Dosage: 1200 MG, DAILY, ORAL
     Route: 048
     Dates: start: 20041103

REACTIONS (7)
  - ADVERSE EVENT [None]
  - CHEST PAIN [None]
  - COUGH [None]
  - FATIGUE [None]
  - INSOMNIA [None]
  - PLEURISY [None]
  - WHITE BLOOD CELL COUNT DECREASED [None]
